FAERS Safety Report 17637486 (Version 1)
Quarter: 2020Q2

REPORT INFORMATION
  Report Type: Spontaneous
  Country: CA (occurrence: CA)
  Receive Date: 20200407
  Receipt Date: 20200407
  Transmission Date: 20200713
  Serious: Yes (Hospitalization)
  Sender: FDA-Public Use
  Company Number: CA-PFIZER INC-2020141143

PATIENT
  Age: 76 Year
  Sex: Female
  Weight: 36 kg

DRUGS (1)
  1. MIDAZOLAM. [Suspect]
     Active Substance: MIDAZOLAM
     Dosage: UNK
     Route: 042

REACTIONS (3)
  - Amnesia [Unknown]
  - Disorientation [Unknown]
  - Incoherent [Unknown]
